FAERS Safety Report 25274554 (Version 1)
Quarter: 2025Q2

REPORT INFORMATION
  Report Type: Spontaneous
  Country: US (occurrence: US)
  Receive Date: 20250506
  Receipt Date: 20250506
  Transmission Date: 20250717
  Serious: Yes (Other)
  Sender: PFIZER
  Company Number: US-PFIZER INC-202500092406

PATIENT
  Age: 72 Year
  Sex: Female

DRUGS (2)
  1. CIBINQO [Suspect]
     Active Substance: ABROCITINIB
     Indication: Dermatitis atopic
     Dosage: 100 MG, DAILY( 1 TABLET BY MOUTH  DAILY)
     Route: 048
     Dates: start: 20250217
  2. CIBINQO [Suspect]
     Active Substance: ABROCITINIB
     Indication: Granulomatous dermatitis

REACTIONS (6)
  - Mouth cyst [Unknown]
  - Skin exfoliation [Unknown]
  - Erythema [Unknown]
  - Burning sensation [Unknown]
  - Tenderness [Unknown]
  - Anxiety [Unknown]
